FAERS Safety Report 23317340 (Version 1)
Quarter: 2023Q4

REPORT INFORMATION
  Report Type: Spontaneous
  Country: US (occurrence: None)
  Receive Date: 20231219
  Receipt Date: 20231219
  Transmission Date: 20240109
  Serious: No
  Sender: FDA-Public Use
  Company Number: US-ROCHE-3308604

PATIENT
  Age: 41 Year
  Sex: Male

DRUGS (3)
  1. HEMLIBRA [Suspect]
     Active Substance: EMICIZUMAB-KXWH
     Indication: Factor VIII deficiency
     Dosage: STRENGTH 60 MG/0.4ML, EVERY 7 DAY FOR 28 DAYS, THEN 240 MG(1.6ML) UNDER THE SKIN EVERY 14 DAYS.
     Route: 058
     Dates: start: 202302
  2. HEMLIBRA [Suspect]
     Active Substance: EMICIZUMAB-KXWH
     Dosage: STRENGTH 60 MG/0.4ML
     Route: 058
     Dates: start: 202302
  3. HEMLIBRA [Suspect]
     Active Substance: EMICIZUMAB-KXWH
     Dosage: STRENGTH 60MG/0.4ML, STRENGTH 105MG/0.7ML
     Route: 058
     Dates: start: 20230218

REACTIONS (1)
  - Haemorrhage [Unknown]

NARRATIVE: CASE EVENT DATE: 20230305
